FAERS Safety Report 23877618 (Version 3)
Quarter: 2024Q2

REPORT INFORMATION
  Report Type: Spontaneous
  Country: US (occurrence: None)
  Receive Date: 20240521
  Receipt Date: 20240627
  Transmission Date: 20240716
  Serious: No
  Sender: FDA-Public Use
  Company Number: 2024A107103

PATIENT
  Age: 29615 Day
  Sex: Female

DRUGS (1)
  1. BYDUREON BCISE [Suspect]
     Active Substance: EXENATIDE
     Dosage: 2.0MG UNKNOWN

REACTIONS (8)
  - Injection site mass [Unknown]
  - Blood glucose increased [Unknown]
  - Injection site pain [Unknown]
  - Injection site pruritus [Unknown]
  - Drug dose omission by device [Unknown]
  - Device use issue [Unknown]
  - Device defective [Unknown]
  - Device leakage [Unknown]

NARRATIVE: CASE EVENT DATE: 20240504
